FAERS Safety Report 6541670-1 (Version None)
Quarter: 2010Q1

REPORT INFORMATION
  Report Type: 
  Country: None (occurrence: None)
  Receive Date: 20100119
  Receipt Date: 20100108
  Transmission Date: 20100710
  Serious: Yes (Hospitalization)
  Sender: FDA-Public Use
  Company Number: FR-CELGENEUS-056-C5013-09120680

PATIENT
  Sex: Female
  Weight: 50.5 kg

DRUGS (16)
  1. THALIDOMIDE [Suspect]
     Indication: MULTIPLE MYELOMA
     Route: 048
     Dates: start: 20091126, end: 20100107
  2. THALIDOMIDE [Suspect]
     Route: 048
     Dates: start: 20090127, end: 20091001
  3. MELPHALAN HYDROCHLORIDE [Suspect]
     Indication: MULTIPLE MYELOMA
     Route: 065
     Dates: start: 20091126, end: 20091129
  4. MELPHALAN HYDROCHLORIDE [Suspect]
     Route: 065
     Dates: start: 20090127, end: 20091001
  5. PREDNISONE [Suspect]
     Indication: MULTIPLE MYELOMA
     Route: 065
     Dates: start: 20091126, end: 20100107
  6. PREDNISONE [Suspect]
     Route: 065
     Dates: start: 20090127, end: 20091001
  7. KARDEGIC [Concomitant]
     Indication: THROMBOSIS PROPHYLAXIS
     Route: 048
     Dates: start: 20090416
  8. OXYCONTIN [Concomitant]
     Indication: BACK PAIN
     Route: 048
     Dates: start: 20090308
  9. OXYNORM [Concomitant]
     Indication: BACK PAIN
     Route: 048
     Dates: start: 20090305
  10. MYOLASTAN [Concomitant]
     Route: 048
     Dates: start: 20080101
  11. MOTILIUM [Concomitant]
     Route: 048
     Dates: start: 20080101
  12. PARACETAMOL [Concomitant]
     Indication: BACK PAIN
     Route: 048
     Dates: start: 20080101
  13. PRIMPERAN TAB [Concomitant]
     Route: 048
     Dates: start: 20081212
  14. ELUDRIL [Concomitant]
     Indication: DRY MOUTH
     Route: 002
     Dates: start: 20081212
  15. FORLAX [Concomitant]
     Indication: DRUG USE FOR UNKNOWN INDICATION
     Route: 065
  16. CLASTOBAN [Concomitant]
     Indication: PROPHYLAXIS
     Route: 048
     Dates: start: 20090415

REACTIONS (1)
  - MULTIPLE MYELOMA [None]
